FAERS Safety Report 4822121-1 (Version None)
Quarter: 2005Q4

REPORT INFORMATION
  Report Type: 
  Country: None (occurrence: None)
  Receive Date: 20051103
  Receipt Date: 20051019
  Transmission Date: 20060501
  Serious: Yes (Hospitalization)
  Sender: FDA-Public Use
  Company Number: EWC050845482

PATIENT
  Age: 42 Year
  Sex: Male

DRUGS (3)
  1. GEMZAR [Suspect]
     Indication: ADENOCARCINOMA
     Dosage: 1800 MG/M2/2 OTHER
     Route: 042
     Dates: start: 20050722, end: 20050729
  2. GEMZAR [Suspect]
     Indication: BONE NEOPLASM
     Dosage: 1800 MG/M2/2 OTHER
     Route: 042
     Dates: start: 20050722, end: 20050729
  3. CISPLATIN [Concomitant]

REACTIONS (1)
  - PANCREATITIS [None]
